FAERS Safety Report 13335757 (Version 1)
Quarter: 2017Q1

REPORT INFORMATION
  Report Type: Spontaneous
  Country: US (occurrence: US)
  Receive Date: 20170315
  Receipt Date: 20170315
  Transmission Date: 20170428
  Serious: No
  Sender: FDA-Public Use
  Company Number: US-TEVA-702305USA

PATIENT
  Age: 64 Year
  Sex: Female
  Weight: 90.7 kg

DRUGS (6)
  1. CETIRIZINE W/PSEUDOEPHEDRINE [Suspect]
     Active Substance: CETIRIZINE HYDROCHLORIDE\PSEUDOEPHEDRINE HYDROCHLORIDE
     Dosage: 5/120 MG
     Route: 048
     Dates: start: 20160914, end: 20160914
  2. NASAL DECONGESTANTS FOR SYSTEMIC USE [Concomitant]
     Indication: NASAL CONGESTION
  3. ATORVASTATIN [Concomitant]
     Active Substance: ATORVASTATIN
     Dates: start: 201607
  4. MULTIVITAMIN [Concomitant]
     Active Substance: VITAMINS
  5. CETIRIZINE W/PSEUDOEPHEDRINE [Suspect]
     Active Substance: CETIRIZINE HYDROCHLORIDE\PSEUDOEPHEDRINE HYDROCHLORIDE
     Indication: PERENNIAL ALLERGY
     Dosage: 5/120 MG
     Route: 048
     Dates: start: 20160901, end: 20160901
  6. FISH OIL [Concomitant]
     Active Substance: FISH OIL

REACTIONS (2)
  - Insomnia [Recovered/Resolved]
  - Fatigue [Not Recovered/Not Resolved]

NARRATIVE: CASE EVENT DATE: 20160914
